FAERS Safety Report 14343176 (Version 1)
Quarter: 2017Q4

REPORT INFORMATION
  Report Type: Spontaneous
  Country: US (occurrence: US)
  Receive Date: 20171229
  Receipt Date: 20171229
  Transmission Date: 20180321
  Serious: Yes (Hospitalization)
  Sender: FDA-Public Use
  Company Number: None

PATIENT
  Age: 56 Year
  Sex: Male

DRUGS (3)
  1. ZOLPIDEM [Concomitant]
     Active Substance: ZOLPIDEM\ZOLPIDEM TARTRATE
  2. SOTALOL. [Concomitant]
     Active Substance: SOTALOL
  3. SOLIQUA 100/33 [Suspect]
     Active Substance: INSULIN GLARGINE\LIXISENATIDE
     Indication: DIABETES MELLITUS
     Route: 058
     Dates: start: 20171006, end: 20171224

REACTIONS (3)
  - Cardiac failure congestive [None]
  - Oedema [None]
  - Acute kidney injury [None]

NARRATIVE: CASE EVENT DATE: 20171224
